FAERS Safety Report 7946165-6 (Version None)
Quarter: 2011Q4

REPORT INFORMATION
  Report Type: 
  Country: None (occurrence: None)
  Receive Date: 20111129
  Receipt Date: 20111118
  Transmission Date: 20120403
  Serious: Yes (Other)
  Sender: FDA-Public Use
  Company Number: FR-GLAXOSMITHKLINE-B0764569A

PATIENT
  Sex: Female

DRUGS (1)
  1. VOTRIENT [Suspect]
     Indication: RENAL CANCER METASTATIC
     Dosage: 600MG PER DAY
     Route: 048
     Dates: start: 20110826, end: 20111003

REACTIONS (2)
  - HEPATOCELLULAR INJURY [None]
  - JAUNDICE [None]
